FAERS Safety Report 15284613 (Version 1)
Quarter: 2018Q3

REPORT INFORMATION
  Report Type: Spontaneous
  Country: DE (occurrence: DE)
  Receive Date: 20180816
  Receipt Date: 20180816
  Transmission Date: 20181010
  Serious: Yes (Life-Threatening, Hospitalization, Other)
  Sender: FDA-Public Use
  Company Number: DE-GLAXOSMITHKLINE-DE2018146184

PATIENT
  Age: 50 Year
  Sex: Male

DRUGS (3)
  1. BUPROPION. [Suspect]
     Active Substance: BUPROPION
     Indication: PRODUCT USED FOR UNKNOWN INDICATION
     Dosage: APPROX. 3000 MG (SUICIDAL INTENTION)
     Route: 048
     Dates: start: 20180108
  2. BUPROPION. [Suspect]
     Active Substance: BUPROPION
     Dosage: TAKING FOR MONTHS
     Route: 048
     Dates: end: 20180107
  3. MIRTAZAPIN [Suspect]
     Active Substance: MIRTAZAPINE
     Indication: PRODUCT USED FOR UNKNOWN INDICATION
     Dosage: TAKING FOR MONTHS
     Route: 048
     Dates: end: 20180108

REACTIONS (2)
  - Generalised tonic-clonic seizure [Recovered/Resolved]
  - Suicidal ideation [Unknown]

NARRATIVE: CASE EVENT DATE: 20180108
